FAERS Safety Report 5198341-6 (Version None)
Quarter: 2007Q1

REPORT INFORMATION
  Report Type: 
  Country: None (occurrence: None)
  Receive Date: 20070104
  Receipt Date: 20061221
  Transmission Date: 20070707
  Serious: Yes (Other)
  Sender: FDA-Public Use
  Company Number: GSK569

PATIENT
  Age: 17 Year
  Sex: Female

DRUGS (8)
  1. PANADOL ULTRA [Suspect]
     Indication: DRUG USE FOR UNKNOWN INDICATION
     Route: 048
  2. SOLPADEINE [Suspect]
  3. CHLORPHENIRAMINE MALEATE [Suspect]
  4. THIAMINE [Suspect]
  5. THIAMINE HCL [Suspect]
  6. PARACETAMOL + CODEINE [Suspect]
  7. DIPHENHYDRAMINE HCL [Suspect]
  8. ASCORBIC ACID [Suspect]

REACTIONS (2)
  - INTENTIONAL OVERDOSE [None]
  - SOMNOLENCE [None]
